FAERS Safety Report 17315426 (Version 2)
Quarter: 2020Q1

REPORT INFORMATION
  Report Type: Report from Study
  Country: BG (occurrence: BG)
  Receive Date: 20200124
  Receipt Date: 20200312
  Transmission Date: 20200409
  Serious: Yes (Other)
  Sender: FDA-Public Use
  Company Number: BG-SA-2019SA047455

PATIENT
  Age: 83 Year
  Sex: Male

DRUGS (2)
  1. CABAZITAXEL [Suspect]
     Active Substance: CABAZITAXEL
     Dosage: 36 MG, Q3W
     Route: 042
     Dates: start: 20190129, end: 20190129
  2. ASPIRIN [ACETYLSALICYLIC ACID] [Concomitant]
     Active Substance: ASPIRIN
     Dosage: UNK UNK, UNK

REACTIONS (3)
  - Stomatitis [Unknown]
  - Ageusia [Recovered/Resolved]
  - Osteonecrosis of jaw [Unknown]
